FAERS Safety Report 11977196 (Version 6)
Quarter: 2016Q2

REPORT INFORMATION
  Report Type: Report from Study
  Country: PL (occurrence: PL)
  Receive Date: 20160129
  Receipt Date: 20160621
  Transmission Date: 20160815
  Serious: Yes (Other)
  Sender: FDA-Public Use
  Company Number: PHHY2015PL074992

PATIENT
  Age: 56 Year
  Sex: Female
  Weight: 89 kg

DRUGS (2)
  1. METFORMAX [Concomitant]
     Active Substance: METFORMIN HYDROCHLORIDE
     Indication: TYPE 2 DIABETES MELLITUS
     Route: 065
  2. TASIGNA [Suspect]
     Active Substance: NILOTINIB
     Indication: CHRONIC MYELOID LEUKAEMIA
     Dosage: 400 MG, BID
     Route: 048
     Dates: start: 20111121

REACTIONS (11)
  - Rash pruritic [Not Recovered/Not Resolved]
  - Musculoskeletal pain [Unknown]
  - Bronchitis [Recovering/Resolving]
  - Cough [Unknown]
  - Alopecia [Recovering/Resolving]
  - Rhinorrhoea [Unknown]
  - Pneumonia [Unknown]
  - Pruritus [Recovered/Resolved]
  - Catarrh [Unknown]
  - Laryngeal pain [Unknown]
  - Body temperature increased [Unknown]

NARRATIVE: CASE EVENT DATE: 20150617
